FAERS Safety Report 13840386 (Version 1)
Quarter: 2017Q3

REPORT INFORMATION
  Report Type: Spontaneous
  Country: BR (occurrence: BR)
  Receive Date: 20170807
  Receipt Date: 20170807
  Transmission Date: 20171127
  Serious: Yes (Other)
  Sender: FDA-Public Use
  Company Number: BR-009507513-1707BRA006402

PATIENT
  Age: 62 Year
  Sex: Female
  Weight: 80 kg

DRUGS (3)
  1. JANUMET XR [Suspect]
     Active Substance: METFORMIN HYDROCHLORIDE\SITAGLIPTIN PHOSPHATE
     Indication: DIABETES MELLITUS
     Dosage: 50/100 MG (1 TABLET), 1 TABLET IN FASTING, 1 TABLET AFTER LUNCH AND 1 TABLET AT NIGHT
     Route: 048
     Dates: start: 2015
  2. GLIBENCLAMID [Concomitant]
     Active Substance: GLYBURIDE
     Indication: DIABETES MELLITUS
     Dosage: 10MG (2 TABLETS): 2 TABLETS IN THE MORNING. 2 TABLETS IN THE AFTERNOON AND 2 TABLETS AT NIGHT
     Route: 048
     Dates: start: 2006
  3. JANUMET XR [Suspect]
     Active Substance: METFORMIN HYDROCHLORIDE\SITAGLIPTIN PHOSPHATE
     Dosage: 1 DF, (1 TABLET IN FASTING, 1 TABLET AFTER LUNCH AND 1 TABLET AT NIGHT)
     Route: 048
     Dates: start: 2016

REACTIONS (7)
  - Dyspepsia [Recovered/Resolved]
  - Hypertension [Recovered/Resolved]
  - Hypersensitivity [Recovered/Resolved]
  - Diabetes mellitus inadequate control [Recovered/Resolved]
  - Product quality issue [Unknown]
  - Drug dose omission [Unknown]
  - Inappropriate schedule of drug administration [Unknown]

NARRATIVE: CASE EVENT DATE: 2015
